FAERS Safety Report 8464714 (Version 3)
Quarter: 2013Q2

REPORT INFORMATION
  Report Type: Spontaneous
  Country: US (occurrence: None)
  Receive Date: 20120229
  Receipt Date: 20130226
  Transmission Date: 20140414
  Serious: Yes (Other)
  Sender: FDA-Public Use
  Company Number: PHEH2011US012633

PATIENT
  Age: 75 Year
  Sex: Female

DRUGS (1)
  1. TOBI [Suspect]
     Indication: CHRONIC OBSTRUCTIVE PULMONARY DISEASE
     Dosage: 300 MG, BID, INHALATION
     Route: 055
     Dates: start: 20100315

REACTIONS (1)
  - DEAFNESS [None]
